FAERS Safety Report 4377713-3 (Version None)
Quarter: 2004Q2

REPORT INFORMATION
  Report Type: 
  Country: None (occurrence: None)
  Receive Date: 20040608
  Receipt Date: 20040525
  Transmission Date: 20050107
  Serious: Yes (Hospitalization, Other)
  Sender: FDA-Public Use
  Company Number: 155372

PATIENT
  Age: 36 Year
  Sex: Male

DRUGS (2)
  1. AVONEX [Suspect]
     Indication: MULTIPLE SCLEROSIS
     Dosage: 30 MCG QW IM
     Route: 030
     Dates: start: 20010101, end: 20010925
  2. AVONEX [Suspect]
     Indication: MULTIPLE SCLEROSIS
     Dosage: 30 MCG QW IM
     Route: 030
     Dates: start: 20011009, end: 20020801

REACTIONS (5)
  - DRUG INEFFECTIVE [None]
  - LEUKOPENIA [None]
  - MULTIPLE SCLEROSIS RELAPSE [None]
  - NEUTROPENIA [None]
  - SELF-MEDICATION [None]
